FAERS Safety Report 6603949-4 (Version None)
Quarter: 2010Q1

REPORT INFORMATION
  Report Type: 
  Country: None (occurrence: None)
  Receive Date: 20100226
  Receipt Date: 20090325
  Transmission Date: 20100710
  Serious: No
  Sender: FDA-Public Use
  Company Number: A0775359A

PATIENT
  Age: 21 Year
  Sex: Female

DRUGS (6)
  1. LAMOTRIGINE [Suspect]
     Dosage: 100MG TWICE PER DAY
     Route: 048
     Dates: start: 20080801, end: 20080901
  2. LEXAPRO [Concomitant]
  3. RESPERIDOL [Concomitant]
  4. CLONIDINE [Concomitant]
  5. ADDERALL XR 10 [Concomitant]
  6. LAMICTAL CD [Concomitant]
     Route: 048
     Dates: start: 20070201, end: 20080801

REACTIONS (1)
  - DRUG INEFFECTIVE [None]
